FAERS Safety Report 4456367-1 (Version None)
Quarter: 2004Q3

REPORT INFORMATION
  Report Type: 
  Country: None (occurrence: None)
  Receive Date: 20040917
  Receipt Date: 20040909
  Transmission Date: 20050211
  Serious: Yes (Hospitalization)
  Sender: FDA-Public Use
  Company Number: 2004233093US

PATIENT
  Sex: Male

DRUGS (1)
  1. DETROL LA [Suspect]

REACTIONS (2)
  - ANURIA [None]
  - DRUG INEFFECTIVE [None]
